FAERS Safety Report 8940660 (Version 1)
Quarter: 2012Q4

REPORT INFORMATION
  Report Type: 
  Country: US (occurrence: US)
  Receive Date: 20121203
  Receipt Date: 20121203
  Transmission Date: 20130627
  Serious: No
  Sender: FDA-Public Use
  Company Number: US-B.I. PHARMACEUTICALS,INC./RIDGEFIELD-2012-BI-01463BP

PATIENT
  Age: 80 Year
  Sex: Male
  Weight: 86 kg

DRUGS (8)
  1. PRADAXA [Suspect]
     Indication: ATRIAL FIBRILLATION
     Dosage: 150 mg
     Route: 048
     Dates: start: 201209, end: 20121111
  2. PRADAXA [Suspect]
     Dosage: 75 mg
     Route: 048
     Dates: start: 20121112
  3. SPIRONOLACTONE [Suspect]
     Indication: PAIN IN EXTREMITY
     Dosage: 100 mg
     Route: 048
     Dates: start: 20121105, end: 20121119
  4. OXYBUTYNIN [Concomitant]
     Indication: POLLAKIURIA
     Dosage: 5 mg
     Route: 048
     Dates: start: 2007
  5. LISINOPRIL [Concomitant]
     Indication: HYPERTENSION
     Dosage: 20 mg
     Route: 048
  6. LOVASTATIN [Concomitant]
     Indication: BLOOD CHOLESTEROL INCREASED
     Dosage: 10 mg
     Route: 048
     Dates: start: 2007
  7. ALLUPURINOL [Concomitant]
     Indication: GOUT
     Dosage: 300 mg
     Route: 048
     Dates: start: 1995
  8. METOPROLOL [Concomitant]
     Indication: CARDIAC DISORDER
     Dosage: 50 mg
     Route: 048
     Dates: start: 201209

REACTIONS (5)
  - Pruritus generalised [Not Recovered/Not Resolved]
  - Constipation [Recovered/Resolved]
  - Abdominal discomfort [Recovered/Resolved]
  - Flatulence [Recovered/Resolved]
  - Weight decreased [Not Recovered/Not Resolved]
